FAERS Safety Report 19918133 (Version 6)
Quarter: 2025Q4

REPORT INFORMATION
  Report Type: Report from Study
  Country: CA (occurrence: CA)
  Receive Date: 20211004
  Receipt Date: 20251202
  Transmission Date: 20260118
  Serious: Yes (Hospitalization, Other)
  Sender: TAKEDA
  Company Number: CA-TAKEDA-2021TUS060791

PATIENT
  Age: 85 Year
  Sex: Female

DRUGS (15)
  1. TEDUGLUTIDE [Suspect]
     Active Substance: TEDUGLUTIDE
     Indication: Short-bowel syndrome
     Dosage: 2.75 MILLIGRAM, QD
     Dates: start: 20171018, end: 20201001
  2. TEDUGLUTIDE [Suspect]
     Active Substance: TEDUGLUTIDE
     Dosage: 1.33 MILLIGRAM, QD
     Dates: start: 20201001
  3. TEDUGLUTIDE [Suspect]
     Active Substance: TEDUGLUTIDE
  4. TEDUGLUTIDE [Suspect]
     Active Substance: TEDUGLUTIDE
  5. CODEINE [Concomitant]
     Active Substance: CODEINE
     Indication: Gastrointestinal stoma complication
     Dosage: 7.50 MILLIGRAM, BID
     Dates: start: 20201104, end: 20210106
  6. CODEINE [Concomitant]
     Active Substance: CODEINE
     Dosage: 15 MILLIGRAM, BID
     Dates: start: 20210106
  7. VITAMIN A [Concomitant]
     Active Substance: VITAMIN A
     Indication: Vitamin A deficiency
     Dosage: 10000 INTERNATIONAL UNIT, QD
     Dates: start: 20201104, end: 20210120
  8. SODIUM CHLORIDE [Concomitant]
     Active Substance: SODIUM CHLORIDE
     Indication: Dehydration
     Dosage: 1000 MILLIGRAM
     Dates: start: 20201001, end: 20201104
  9. VITAMIN D [Concomitant]
     Active Substance: VITAMIN D NOS
     Indication: Vitamin D deficiency
     Dosage: 10000 INTERNATIONAL UNIT, QD
     Dates: start: 20190515
  10. VITAMIN B12 [Concomitant]
     Active Substance: CYANOCOBALAMIN
     Indication: Vitamin B12 deficiency
     Dosage: 1000 MICROGRAM, MONTHLY
  11. OMEPRAZOLE [Concomitant]
     Active Substance: OMEPRAZOLE
     Indication: Gastrointestinal disorder
     Dosage: 20 MILLIGRAM, QD
  12. SIMETHICONE (DIMETHICONE) [Concomitant]
     Active Substance: DIMETHICONE
     Indication: Abdominal distension
     Dosage: UNK
  13. LEVOTHYROXINE [Concomitant]
     Active Substance: LEVOTHYROXINE
     Indication: Hypothyroidism
     Dosage: UNK
  14. ZINC [Concomitant]
     Active Substance: ZINC
     Indication: Zinc deficiency
     Dosage: 50 MILLIGRAM, BID
     Dates: start: 20190515
  15. Magnesium bisglycinate [Concomitant]
     Indication: Supplementation therapy
     Dosage: 200 MILLIGRAM, BID
     Dates: start: 20171207

REACTIONS (2)
  - Malignant melanoma stage 0 [Not Recovered/Not Resolved]
  - Intraductal papillary mucinous neoplasm [Not Recovered/Not Resolved]

NARRATIVE: CASE EVENT DATE: 20190524
